FAERS Safety Report 4349513-1 (Version None)
Quarter: 2004Q2

REPORT INFORMATION
  Report Type: 
  Country: None (occurrence: None)
  Receive Date: 20040426
  Receipt Date: 20040416
  Transmission Date: 20050107
  Serious: Yes (Hospitalization)
  Sender: FDA-Public Use
  Company Number: US-JNJFOC-20040404393

PATIENT
  Age: 54 Year
  Sex: Female

DRUGS (2)
  1. DURAGESIC [Suspect]
     Indication: PAIN
     Dosage: SEE IMAGE
     Route: 062
     Dates: start: 20040301, end: 20040407
  2. DURAGESIC [Suspect]
     Indication: PAIN
     Dosage: SEE IMAGE
     Route: 062
     Dates: start: 20040414

REACTIONS (5)
  - ABDOMINAL PAIN UPPER [None]
  - NAUSEA [None]
  - PYREXIA [None]
  - SOMNOLENCE [None]
  - TREMOR [None]
